FAERS Safety Report 5883965-0 (Version None)
Quarter: 2008Q3

REPORT INFORMATION
  Report Type: 
  Country: None (occurrence: None)
  Receive Date: 20080915
  Receipt Date: 20080905
  Transmission Date: 20090109
  Serious: Yes (Life-Threatening, Hospitalization)
  Sender: FDA-Public Use
  Company Number: FR-ROCHE-584770

PATIENT
  Sex: Female

DRUGS (6)
  1. VALIUM [Suspect]
     Indication: DRUG USE FOR UNKNOWN INDICATION
     Route: 048
     Dates: start: 20080620, end: 20080728
  2. STILNOX [Suspect]
     Indication: DRUG USE FOR UNKNOWN INDICATION
     Route: 048
     Dates: start: 20080623, end: 20080728
  3. AOTAL [Suspect]
     Indication: DRUG USE FOR UNKNOWN INDICATION
     Route: 048
     Dates: start: 20080620, end: 20080728
  4. SEGLOR [Suspect]
     Indication: DRUG USE FOR UNKNOWN INDICATION
     Route: 048
     Dates: start: 20080625, end: 20080720
  5. SEROPRAM [Suspect]
     Indication: DRUG USE FOR UNKNOWN INDICATION
     Dosage: DRUG NAME REPORTED AS: SEROPRAM 20
     Route: 048
     Dates: start: 20080620, end: 20080728
  6. DEPAKOTE [Suspect]
     Indication: DRUG USE FOR UNKNOWN INDICATION
     Route: 048
     Dates: start: 20080624, end: 20080720

REACTIONS (1)
  - HEPATITIS FULMINANT [None]
